FAERS Safety Report 24609240 (Version 1)
Quarter: 2024Q4

REPORT INFORMATION
  Report Type: Spontaneous
  Country: US (occurrence: US)
  Receive Date: 20241112
  Receipt Date: 20241112
  Transmission Date: 20250114
  Serious: Yes (Other)
  Sender: KYOWA
  Company Number: US-KYOWAKIRIN-2024KK025248

PATIENT

DRUGS (1)
  1. CRYSVITA [Suspect]
     Active Substance: BUROSUMAB-TWZA
     Indication: Congenital connective tissue disorder
     Dosage: UNK
     Route: 065

REACTIONS (5)
  - Ascites [Unknown]
  - Hypoalbuminaemia [Unknown]
  - Illness [Unknown]
  - Intestinal villi atrophy [Unknown]
  - Product use in unapproved indication [Unknown]
